FAERS Safety Report 9682248 (Version 2)
Quarter: 2013Q4

REPORT INFORMATION
  Report Type: Spontaneous
  Country: AU (occurrence: AU)
  Receive Date: 20131112
  Receipt Date: 20131121
  Transmission Date: 20140711
  Serious: Yes (Hospitalization)
  Sender: FDA-Public Use
  Company Number: AU-AMGEN-AUSSP2013078628

PATIENT
  Age: 68 Year
  Sex: Female

DRUGS (4)
  1. PROLIA [Suspect]
     Indication: OSTEOPOROSIS
     Dosage: UNK
     Route: 065
  2. BACTRIM [Concomitant]
     Indication: STAPHYLOCOCCAL INFECTION
  3. PREDNISOLON                        /00016201/ [Concomitant]
     Indication: RASH MACULO-PAPULAR
     Dosage: 5 MG, QD
  4. OXYGEN [Concomitant]

REACTIONS (3)
  - Rash maculo-papular [Recovered/Resolved]
  - Urticaria [Recovered/Resolved]
  - Skin exfoliation [Recovering/Resolving]
